FAERS Safety Report 4480900-7 (Version None)
Quarter: 2004Q4

REPORT INFORMATION
  Report Type: 
  Country: None (occurrence: None)
  Receive Date: 20041021
  Receipt Date: 20041011
  Transmission Date: 20050328
  Serious: Yes (Hospitalization)
  Sender: FDA-Public Use
  Company Number: DE-BRISTOL-MYERS SQUIBB COMPANY-12728648

PATIENT
  Sex: Male

DRUGS (4)
  1. REYATAZ [Suspect]
     Indication: HIV INFECTION
     Dates: start: 20040401
  2. RITONAVIR [Concomitant]
     Dates: start: 20040401
  3. EPIVIR [Concomitant]
     Dates: start: 20040401
  4. TENOFOVIR [Concomitant]
     Dates: start: 20040401

REACTIONS (1)
  - KETOACIDOSIS [None]
